FAERS Safety Report 4316061-4 (Version None)
Quarter: 2004Q1

REPORT INFORMATION
  Report Type: 
  Country: None (occurrence: None)
  Receive Date: 20040310
  Receipt Date: 20040225
  Transmission Date: 20041129
  Serious: Yes (Other)
  Sender: FDA-Public Use
  Company Number: 2000-BP-01682

PATIENT
  Age: 1 Day
  Sex: Male

DRUGS (4)
  1. VIRAMUNE [Suspect]
     Indication: PROPHYLAXIS AGAINST HIV INFECTION
     Dosage: 200 MG (200 MG, SINGLE MATERNAL) IU
     Dates: start: 20000817, end: 20000817
  2. ZIDOVUDINE [Concomitant]
  3. OXYGEN [Concomitant]
  4. TICE BCG [Concomitant]

REACTIONS (10)
  - BACTERIAL SEPSIS [None]
  - COMPLICATIONS OF MATERNAL EXPOSURE TO THERAPEUTIC DRUGS [None]
  - DIARRHOEA NEONATAL [None]
  - DRUG EXPOSURE DURING PREGNANCY [None]
  - FEEDING PROBLEM IN NEWBORN [None]
  - FOETAL HEART RATE DECELERATION [None]
  - HYPOGLYCAEMIA NEONATAL [None]
  - LETHARGY [None]
  - MENINGITIS NEONATAL [None]
  - POOR SUCKING REFLEX [None]
